FAERS Safety Report 17161901 (Version 1)
Quarter: 2019Q4

REPORT INFORMATION
  Report Type: Spontaneous
  Country: JP (occurrence: JP)
  Receive Date: 20191217
  Receipt Date: 20191217
  Transmission Date: 20200122
  Serious: Yes (Hospitalization)
  Sender: FDA-Public Use
  Company Number: JP-TAKEDA-2019TJP027383

PATIENT
  Age: 80 Year
  Sex: Male

DRUGS (3)
  1. TAKECAB TABLETS 20MG [Suspect]
     Active Substance: VONOPRAZAN FUMURATE
     Indication: GASTRIC ULCER
     Dosage: UNK
     Route: 048
     Dates: start: 20191108
  2. TAKEPRON [Suspect]
     Active Substance: LANSOPRAZOLE
     Indication: PRODUCT USED FOR UNKNOWN INDICATION
     Dosage: 60 MILLIGRAM
     Route: 042
     Dates: start: 20191106, end: 20191107
  3. CEFTRIAXONE SODIUM. [Suspect]
     Active Substance: CEFTRIAXONE SODIUM
     Indication: PRODUCT USED FOR UNKNOWN INDICATION
     Dosage: 1 GRAM
     Route: 041
     Dates: start: 20191106, end: 20191106

REACTIONS (1)
  - Clostridium difficile colitis [Recovered/Resolved]

NARRATIVE: CASE EVENT DATE: 20191109
